FAERS Safety Report 5693741-X (Version None)
Quarter: 2008Q2

REPORT INFORMATION
  Report Type: 
  Country: None (occurrence: None)
  Receive Date: 20080403
  Receipt Date: 20080325
  Transmission Date: 20081010
  Serious: No
  Sender: FDA-Public Use
  Company Number: CA-ALLERGAN-0801597US

PATIENT
  Sex: Female

DRUGS (1)
  1. BOTOX [Suspect]
     Indication: BACK PAIN
     Dosage: 200 UNITS, UNK
     Route: 030
     Dates: start: 20080131, end: 20080131

REACTIONS (3)
  - DIARRHOEA [None]
  - PAIN [None]
  - RASH [None]
